FAERS Safety Report 5928567-2 (Version None)
Quarter: 2008Q3

REPORT INFORMATION
  Report Type: 
  Country: None (occurrence: None)
  Receive Date: 20080923
  Receipt Date: 20071109
  Transmission Date: 20090109
  Serious: Yes (Other)
  Sender: FDA-Public Use
  Company Number: WAES 0711USA02197

PATIENT
  Sex: Female

DRUGS (2)
  1. VYTORIN [Suspect]
     Indication: BLOOD CHOLESTEROL
     Dosage: 10-40 MG/DAILY/PO
     Route: 048
  2. [THERAPY UNSPECIFIED] [Concomitant]

REACTIONS (1)
  - RHABDOMYOLYSIS [None]
